FAERS Safety Report 9021893 (Version 3)
Quarter: 2013Q3

REPORT INFORMATION
  Report Type: Spontaneous
  Country: US (occurrence: US)
  Receive Date: 20130118
  Receipt Date: 20130724
  Transmission Date: 20140515
  Serious: No
  Sender: FDA-Public Use
  Company Number: US-009507513-1208USA007061

PATIENT
  Sex: Female

DRUGS (2)
  1. SINEMET CR [Suspect]
     Dosage: 25MG/100MG
     Route: 048
  2. SINEMET [Suspect]
     Indication: PARKINSON^S DISEASE
     Dosage: ONE AND ONE HALF A TABLET
     Route: 048
     Dates: start: 2005

REACTIONS (6)
  - Neck pain [Unknown]
  - Musculoskeletal stiffness [Unknown]
  - Nuchal rigidity [Unknown]
  - Wrong technique in drug usage process [Unknown]
  - Off label use [Unknown]
  - Malaise [Unknown]
